FAERS Safety Report 10671329 (Version 3)
Quarter: 2015Q4

REPORT INFORMATION
  Report Type: Spontaneous
  Country: US (occurrence: US)
  Receive Date: 20141223
  Receipt Date: 20151023
  Transmission Date: 20160304
  Serious: No
  Sender: FDA-Public Use
  Company Number: US-BAYER-2014-188274

PATIENT
  Age: 82 Year
  Sex: Male
  Weight: 82 kg

DRUGS (1)
  1. ALEVE PM [Suspect]
     Active Substance: DIPHENHYDRAMINE HYDROCHLORIDE\NAPROXEN SODIUM
     Indication: SLEEP DISORDER THERAPY
     Dosage: 2 DF, QD
     Route: 048
     Dates: start: 20141215, end: 20141218

REACTIONS (1)
  - Drug ineffective for unapproved indication [None]
